FAERS Safety Report 4828865-X (Version None)
Quarter: 2005Q4

REPORT INFORMATION
  Report Type: 
  Country: None (occurrence: None)
  Receive Date: 20051014
  Receipt Date: 20050630
  Transmission Date: 20060501
  Serious: No
  Sender: FDA-Public Use
  Company Number: 2005SP001818

PATIENT
  Age: 67 Year
  Sex: Female
  Weight: 92.5338 kg

DRUGS (8)
  1. LUNESTA [Suspect]
     Indication: INSOMNIA
     Dosage: 3 MG; HS; ORAL
     Route: 048
     Dates: start: 20050401
  2. DAYPRO [Concomitant]
  3. VYTORIN [Concomitant]
  4. ALLEGRA [Concomitant]
  5. LEVOTHYROXINE SODIUM [Concomitant]
  6. BETA BLOCKER [Concomitant]
  7. LORTAB [Concomitant]
  8. GLUCOPHAGE [Concomitant]

REACTIONS (3)
  - DIZZINESS [None]
  - DRUG INEFFECTIVE [None]
  - INSOMNIA [None]
